FAERS Safety Report 21123441 (Version 1)
Quarter: 2022Q3

REPORT INFORMATION
  Report Type: Spontaneous
  Country: US (occurrence: US)
  Receive Date: 20220724
  Receipt Date: 20220724
  Transmission Date: 20221027
  Serious: No
  Sender: FDA-Public Use
  Company Number: US-ELI_LILLY_AND_COMPANY-US202207009275

PATIENT
  Sex: Male

DRUGS (3)
  1. HUMULIN R [Suspect]
     Active Substance: INSULIN HUMAN
     Indication: Diabetes mellitus
     Dosage: 55 U, UNKNOWN, 45-55 UNITS
     Route: 058
  2. HUMULIN R [Suspect]
     Active Substance: INSULIN HUMAN
     Dosage: 110 U, UNKNOWN
     Route: 058
  3. HUMULIN R [Suspect]
     Active Substance: INSULIN HUMAN
     Dosage: UNK UNK, UNKNOWN
     Route: 058

REACTIONS (3)
  - Blood glucose abnormal [Recovered/Resolved]
  - Drug ineffective [Recovered/Resolved]
  - Product storage error [Unknown]
